FAERS Safety Report 15599336 (Version 1)
Quarter: 2018Q4

REPORT INFORMATION
  Report Type: Spontaneous
  Country: NO (occurrence: NO)
  Receive Date: 20181108
  Receipt Date: 20181108
  Transmission Date: 20190205
  Serious: Yes (Death, Hospitalization, Other)
  Sender: FDA-Public Use
  Company Number: NO-PFIZER INC-2018453846

PATIENT
  Age: 80 Year
  Sex: Male

DRUGS (7)
  1. APIXABAN [Concomitant]
     Active Substance: APIXABAN
     Indication: ATRIAL FLUTTER
     Dosage: UNK
     Route: 065
     Dates: start: 2015
  2. SIMVASTATIN. [Concomitant]
     Active Substance: SIMVASTATIN
     Dosage: UNK
     Route: 065
  3. METOPROLOL SANDOZ [METOPROLOL TARTRATE] [Concomitant]
     Indication: CARDIAC FAILURE
     Dosage: 50 MG, UNK
     Route: 065
  4. BUMETANIDE. [Concomitant]
     Active Substance: BUMETANIDE
     Dosage: UNK
     Route: 065
  5. ENALAPRIL SANDOZ [Concomitant]
     Active Substance: ENALAPRIL
     Indication: CARDIAC FAILURE
     Dosage: 2.5 MG, UNK
     Route: 065
  6. CORDARONE [Suspect]
     Active Substance: AMIODARONE HYDROCHLORIDE
     Indication: ATRIAL FLUTTER
     Dosage: 200 MG, UNK
     Route: 048
     Dates: start: 20171127, end: 20181001
  7. ALBYL-E [Concomitant]
     Active Substance: ASPIRIN\MAGNESIUM OXIDE
     Dosage: 75 MG, UNK
     Route: 065

REACTIONS (5)
  - Pulmonary function test decreased [Fatal]
  - C-reactive protein increased [Unknown]
  - Interstitial lung disease [Fatal]
  - Dyspnoea [Fatal]
  - White blood cell count increased [Unknown]

NARRATIVE: CASE EVENT DATE: 20180925
